FAERS Safety Report 8186624-7 (Version None)
Quarter: 2012Q1

REPORT INFORMATION
  Report Type: 
  Country: None (occurrence: None)
  Receive Date: 20120302
  Receipt Date: 20120302
  Transmission Date: 20120608
  Serious: No
  Sender: FDA-Public Use
  Company Number: None

PATIENT

DRUGS (1)
  1. DOXAZOSIN MESYLATE [Suspect]
     Dates: start: 20111218, end: 20111227

REACTIONS (5)
  - SENSORY DISTURBANCE [None]
  - HEADACHE [None]
  - DIARRHOEA [None]
  - FATIGUE [None]
  - HYPOAESTHESIA [None]
